FAERS Safety Report 7947229-3 (Version None)
Quarter: 2011Q4

REPORT INFORMATION
  Report Type: 
  Country: None (occurrence: None)
  Receive Date: 20111129
  Receipt Date: 20111115
  Transmission Date: 20120403
  Serious: Yes (Hospitalization, Other)
  Sender: FDA-Public Use
  Company Number: US-ASTRAZENECA-2011SE49158

PATIENT
  Age: 64 Year
  Sex: Female
  Weight: 70.8 kg

DRUGS (20)
  1. ARIMIDEX [Suspect]
     Indication: BREAST CANCER
     Route: 048
     Dates: start: 20070901
  2. AMLODIPINE BESYLATE [Concomitant]
     Indication: HYPERTENSION
     Route: 048
  3. VITAMIN B1 TAB [Concomitant]
     Route: 048
  4. MULTI-VITAMINS [Concomitant]
     Route: 048
  5. COMBIVENT [Concomitant]
     Indication: WHEEZING
     Dosage: 18 MCG IPROTROPIUM, 103 MCG ALBUTEROL PER PUFF, 2 PUFFS FOUR TIMES A DAY AS NEEDED
     Route: 055
  6. VITAMIN D [Concomitant]
     Route: 048
  7. CALCIUM-D [Concomitant]
  8. SENNA [Concomitant]
     Dosage: 1 TO 2 DAILY AS NEEDED
  9. CRANBERRY [Concomitant]
     Route: 048
  10. ASCORBIC ACID [Concomitant]
     Route: 048
  11. ALCOHOL [Suspect]
  12. ALBUTEROL SULFATE AUTOHALER [Concomitant]
     Dosage: 90 MCG2 PUFFS EVERY 6 HOURS AS NEEDED
  13. CALCIUM CARBONATE [Concomitant]
     Route: 048
  14. IPRATROPIUM BROMIDE AND ALBUTEROL SULFATE [Concomitant]
     Dosage: EVERY 4 HOURS AS NEEDED
     Route: 048
  15. NADOLOL [Concomitant]
     Route: 048
  16. ATENOLOL [Suspect]
     Route: 048
  17. REMERON [Concomitant]
     Dosage: 1/2 TABLET AT BEDTIME
  18. OMEPRAZOLE [Suspect]
     Route: 048
  19. OXYCODONE HCL [Concomitant]
     Dosage: 1 EVERY 6 HOURS AS NEEDED
  20. ENSURE [Concomitant]
     Route: 048

REACTIONS (15)
  - FALL [None]
  - MENTAL STATUS CHANGES [None]
  - CIRRHOSIS ALCOHOLIC [None]
  - ASCITES [None]
  - ESSENTIAL HYPERTENSION [None]
  - METABOLIC DISORDER [None]
  - BRONCHITIS [None]
  - LIGAMENT SPRAIN [None]
  - SEPSIS [None]
  - RENAL FAILURE ACUTE [None]
  - MUSCULOSKELETAL PAIN [None]
  - BLOOD PRESSURE ABNORMAL [None]
  - HEPATIC CIRRHOSIS [None]
  - URINARY TRACT INFECTION [None]
  - CHRONIC OBSTRUCTIVE PULMONARY DISEASE [None]
